FAERS Safety Report 16747439 (Version 2)
Quarter: 2020Q1

REPORT INFORMATION
  Report Type: Spontaneous
  Country: US (occurrence: US)
  Receive Date: 20190827
  Receipt Date: 20200102
  Transmission Date: 20200409
  Serious: Yes (Other)
  Sender: FDA-Public Use
  Company Number: US-GALDERMA-US19052845

PATIENT
  Sex: Female

DRUGS (1)
  1. CLOBETASOL PROPIONATE (CLOBETASOL PROPIONATE) [Suspect]
     Active Substance: CLOBETASOL PROPIONATE
     Indication: MORPHOEA
     Route: 061

REACTIONS (2)
  - Intentional product use issue [Recovered/Resolved]
  - Schizophrenia [Recovered/Resolved]
